FAERS Safety Report 15783403 (Version 2)
Quarter: 2019Q1

REPORT INFORMATION
  Report Type: Spontaneous
  Country: JP (occurrence: JP)
  Receive Date: 20190102
  Receipt Date: 20190104
  Transmission Date: 20190417
  Serious: Yes (Hospitalization)
  Sender: FDA-Public Use
  Company Number: JP-PFIZER INC-2018534444

PATIENT
  Age: 69 Year
  Sex: Female

DRUGS (7)
  1. DOXORUBICIN HCL [Suspect]
     Active Substance: DOXORUBICIN HYDROCHLORIDE
     Indication: B-CELL LYMPHOMA
     Dosage: UNK, CYCLIC (REPEATED EVERY THREE TO FOUR WEEKS FOR FOUR CYCLES)
     Dates: start: 201409
  2. VINCRISTINE SULFATE. [Suspect]
     Active Substance: VINCRISTINE SULFATE
     Indication: B-CELL LYMPHOMA
     Dosage: UNK, CYCLIC (REPEATED EVERY THREE TO FOUR WEEKS FOR FOUR CYCLES)
     Dates: start: 201409
  3. RITUXIMAB. [Suspect]
     Active Substance: RITUXIMAB
     Dosage: UNK (LAST RITUXIMAB ADMINISTRATION)
     Dates: start: 201504
  4. CYCLOPHOSPHAMIDE. [Suspect]
     Active Substance: CYCLOPHOSPHAMIDE
     Indication: B-CELL LYMPHOMA
     Dosage: UNK, CYCLIC (REPEATED EVERY THREE TO FOUR WEEKS FOR FOUR CYCLES)
     Dates: start: 201409
  5. RITUXIMAB. [Suspect]
     Active Substance: RITUXIMAB
     Dosage: UNK, CYCLIC (SUBSEQUENT TWO CYCLES OF RITUXIMAB MONOTHERAPY)
     Dates: start: 2015
  6. RITUXIMAB. [Suspect]
     Active Substance: RITUXIMAB
     Indication: DIFFUSE LARGE B-CELL LYMPHOMA
     Dosage: UNK UNK, CYCLIC (REPEATED EVERY THREE TO FOUR WEEKS FOR FOUR CYCLES)
     Dates: start: 201409
  7. PREDNISONE. [Suspect]
     Active Substance: PREDNISONE
     Indication: B-CELL LYMPHOMA
     Dosage: UNK UNK, CYCLIC (REPEATED EVERY THREE TO FOUR WEEKS FOR FOUR CYCLES)
     Dates: start: 201409

REACTIONS (1)
  - Helicobacter infection [Recovered/Resolved]

NARRATIVE: CASE EVENT DATE: 2014
